FAERS Safety Report 9944744 (Version 1)
Quarter: 2014Q1

REPORT INFORMATION
  Report Type: Report from Study
  Country: US (occurrence: US)
  Receive Date: 20140303
  Receipt Date: 20140303
  Transmission Date: 20141002
  Serious: No
  Sender: FDA-Public Use
  Company Number: US-ABBVIE-13P-163-1054437-00

PATIENT
  Age: 60 Year
  Sex: Female
  Weight: 112.14 kg

DRUGS (10)
  1. HUMIRA PEN [Suspect]
     Indication: RHEUMATOID ARTHRITIS
     Dates: start: 201105
  2. HUMIRA PEN [Suspect]
  3. ASPIRIN [Concomitant]
     Indication: CARDIOVASCULAR EVENT PROPHYLAXIS
  4. ATENOLOL [Concomitant]
     Indication: HYPERTENSION
  5. BENADRYL [Concomitant]
     Indication: HYPERSENSITIVITY
  6. DIOVAN [Concomitant]
     Indication: HYPERTENSION
  7. EPI-PEN [Concomitant]
     Indication: HYPERSENSITIVITY
  8. FOLIC ACID [Concomitant]
     Indication: VITAMIN SUPPLEMENTATION
  9. PRILOSEC [Concomitant]
     Indication: GASTROOESOPHAGEAL REFLUX DISEASE
  10. ZANTAC [Concomitant]
     Indication: GASTROOESOPHAGEAL REFLUX DISEASE

REACTIONS (1)
  - Influenza [Recovered/Resolved]
